FAERS Safety Report 17323420 (Version 1)
Quarter: 2020Q1

REPORT INFORMATION
  Report Type: Spontaneous
  Country: US (occurrence: US)
  Receive Date: 20200127
  Receipt Date: 20200127
  Transmission Date: 20200409
  Serious: No
  Sender: FDA-Public Use
  Company Number: US-ACORDA-ACO_162592_2019

PATIENT
  Sex: Female

DRUGS (1)
  1. AMPYRA [Suspect]
     Active Substance: DALFAMPRIDINE
     Indication: GAIT DISTURBANCE
     Dosage: 10 MILLIGRAM, BID
     Route: 048

REACTIONS (6)
  - Vitamin D decreased [Unknown]
  - Drug ineffective [Unknown]
  - Sleep disorder [Unknown]
  - Gait disturbance [Unknown]
  - Fatigue [Unknown]
  - Condition aggravated [Unknown]
